FAERS Safety Report 9853660 (Version 1)
Quarter: 2014Q1

REPORT INFORMATION
  Report Type: Spontaneous
  Country: US (occurrence: US)
  Receive Date: 20140129
  Receipt Date: 20140129
  Transmission Date: 20141002
  Serious: No
  Sender: FDA-Public Use
  Company Number: US-VIIV HEALTHCARE LIMITED-A1012854A

PATIENT
  Sex: Male

DRUGS (2)
  1. COMBIVIR [Suspect]
     Route: 048
  2. UNKNOWN MEDICATION [Concomitant]

REACTIONS (2)
  - Oral fungal infection [Unknown]
  - Tongue discolouration [Unknown]
